FAERS Safety Report 6029736-6 (Version None)
Quarter: 2009Q1

REPORT INFORMATION
  Report Type: 
  Country: None (occurrence: None)
  Receive Date: 20090107
  Receipt Date: 20081217
  Transmission Date: 20090719
  Serious: Yes (Death)
  Sender: FDA-Public Use
  Company Number: US-ASTRAZENECA-2008UW11929

PATIENT
  Age: 50 Year
  Sex: Male

DRUGS (3)
  1. SEROQUEL [Suspect]
     Indication: SCHIZOPHRENIA
     Dosage: 100 TO 300 MG
     Route: 048
     Dates: start: 20041006, end: 20070801
  2. SEROQUEL [Suspect]
     Indication: DEPRESSION
     Dosage: 100 TO 300 MG
     Route: 048
     Dates: start: 20041006, end: 20070801
  3. SEROQUEL [Suspect]
     Indication: BIPOLAR DISORDER
     Dosage: 100 TO 300 MG
     Route: 048
     Dates: start: 20041006, end: 20070801

REACTIONS (3)
  - CARDIAC DISORDER [None]
  - CARDIAC FAILURE CONGESTIVE [None]
  - DIABETES MELLITUS [None]
